FAERS Safety Report 10195371 (Version 1)
Quarter: 2014Q2

REPORT INFORMATION
  Report Type: Report from Study
  Country: ZA (occurrence: ZA)
  Receive Date: 20140526
  Receipt Date: 20140526
  Transmission Date: 20141212
  Serious: Yes (Hospitalization)
  Sender: FDA-Public Use
  Company Number: PHHY2014ZA062459

PATIENT
  Age: 82 Year
  Sex: Female

DRUGS (8)
  1. CO-DIOVAN [Suspect]
     Indication: HYPERTENSION
     Dosage: UNK UKN, UNK
     Dates: start: 201108
  2. CO-TAREG [Suspect]
     Indication: HYPERTENSION
     Dosage: UNK UKN, UNK
     Dates: start: 201202, end: 201205
  3. LEXAMIL [Concomitant]
     Indication: MAJOR DEPRESSION
  4. ASACOL [Concomitant]
     Indication: COLITIS ULCERATIVE
  5. ALTOSEC//OMEPRAZOLE [Concomitant]
     Indication: DUODENAL ULCER
  6. VIT D [Concomitant]
  7. SMECTA//DIOSMECTITE [Concomitant]
     Indication: DIARRHOEA
  8. QUESTRAN [Concomitant]
     Indication: BLOOD CHOLESTEROL ABNORMAL

REACTIONS (2)
  - Heart rate irregular [Recovered/Resolved]
  - Oropharyngeal pain [Recovered/Resolved]
